FAERS Safety Report 5218689-6 (Version None)
Quarter: 2007Q1

REPORT INFORMATION
  Report Type: 
  Country: None (occurrence: None)
  Receive Date: 20070122
  Receipt Date: 20070111
  Transmission Date: 20070707
  Serious: Yes (Death, Life-Threatening)
  Sender: FDA-Public Use
  Company Number: 2006SP008537

PATIENT
  Age: 43 Year
  Sex: Female
  Weight: 58.514 kg

DRUGS (4)
  1. INTRON  (INTERFERON ALFA-2B RECOMBINANT) [Suspect]
     Indication: MALIGNANT MELANOMA
     Dosage: 32 MIU; IV
     Route: 042
     Dates: start: 20061211, end: 20061211
  2. ZOLOFT [Concomitant]
  3. ATIVAN [Concomitant]
  4. ULTRACET [Concomitant]

REACTIONS (3)
  - ANXIETY [None]
  - DYSPNOEA [None]
  - LOSS OF CONSCIOUSNESS [None]
